FAERS Safety Report 10418990 (Version 2)
Quarter: 2014Q3

REPORT INFORMATION
  Report Type: Spontaneous
  Country: DE (occurrence: DE)
  Receive Date: 20140829
  Receipt Date: 20140918
  Transmission Date: 20150326
  Serious: Yes (Hospitalization)
  Sender: FDA-Public Use
  Company Number: DE-TEVA-504435GER

PATIENT
  Age: 54 Year
  Sex: Male

DRUGS (18)
  1. TORASEMIDE [Interacting]
     Active Substance: TORSEMIDE
     Dosage: 20 MILLIGRAM DAILY;
     Route: 065
     Dates: start: 201202
  2. BROMPERIDOL [Concomitant]
     Active Substance: BROMPERIDOL
     Route: 065
  3. QUETIAPINE [Interacting]
     Active Substance: QUETIAPINE
     Dosage: 800 MILLIGRAM DAILY;
     Route: 065
     Dates: start: 201202
  4. SIMVASTATIN. [Concomitant]
     Active Substance: SIMVASTATIN
     Indication: HYPERLIPIDAEMIA
     Dosage: 20 MILLIGRAM DAILY;
     Route: 065
     Dates: start: 201202
  5. VALPROIC ACID. [Interacting]
     Active Substance: VALPROIC ACID
     Dosage: 600 MILLIGRAM DAILY;
     Route: 065
     Dates: start: 201202
  6. ASPIRIN. [Concomitant]
     Active Substance: ASPIRIN
     Dosage: 100 MILLIGRAM DAILY;
     Route: 065
     Dates: start: 201202
  7. AMISULPRIDE [Concomitant]
     Active Substance: AMISULPRIDE
     Route: 065
     Dates: start: 2006
  8. QUETIAPINE [Interacting]
     Active Substance: QUETIAPINE
     Dosage: 800 MILLIGRAM DAILY;
     Route: 065
  9. METOPROLOL [Interacting]
     Active Substance: METOPROLOL
     Indication: HYPERTENSION
     Dosage: 100 MILLIGRAM DAILY;
     Route: 065
     Dates: start: 201202
  10. NORTRIPTYLINE [Interacting]
     Active Substance: NORTRIPTYLINE
     Dosage: 75 MILLIGRAM DAILY;
     Route: 065
     Dates: start: 201202
  11. RAMIPRIL. [Concomitant]
     Active Substance: RAMIPRIL
     Dosage: 10 MILLIGRAM DAILY;
     Route: 065
     Dates: start: 201202
  12. PANTOPRAZOLE [Concomitant]
     Active Substance: PANTOPRAZOLE SODIUM
     Dosage: 40 MILLIGRAM DAILY;
     Route: 065
     Dates: start: 201202
  13. LORAZEPAM. [Suspect]
     Active Substance: LORAZEPAM
     Dosage: UPTO 3.5 MG/DAY
     Route: 065
     Dates: start: 201202
  14. TAMSULOSIN [Concomitant]
     Active Substance: TAMSULOSIN
     Dosage: .4 MILLIGRAM DAILY;
     Route: 065
     Dates: start: 201202
  15. OLANZAPINE. [Concomitant]
     Active Substance: OLANZAPINE
     Route: 065
  16. LEVOTHYROXINE SODIUM. [Concomitant]
     Active Substance: LEVOTHYROXINE SODIUM
     Indication: HYPOTHYROIDISM
     Dosage: 50 MICROGRAM DAILY;
     Route: 065
     Dates: start: 201202
  17. FLUPENTIXOL [Concomitant]
     Active Substance: FLUPENTIXOL
     Route: 065
  18. ZIPRASIDONE [Concomitant]
     Active Substance: ZIPRASIDONE
     Route: 065

REACTIONS (4)
  - Drug interaction [Recovering/Resolving]
  - Sedation [Recovering/Resolving]
  - Inappropriate antidiuretic hormone secretion [Unknown]
  - Altered state of consciousness [Recovering/Resolving]

NARRATIVE: CASE EVENT DATE: 201306
